FAERS Safety Report 7806345-7 (Version None)
Quarter: 2011Q4

REPORT INFORMATION
  Report Type: 
  Country: None (occurrence: None)
  Receive Date: 20111011
  Receipt Date: 20110929
  Transmission Date: 20120403
  Serious: Yes (Hospitalization)
  Sender: FDA-Public Use
  Company Number: CA-JNJFOC-20110906876

PATIENT
  Sex: Female

DRUGS (11)
  1. ATENOLOL [Concomitant]
     Route: 065
  2. FUROSEMIDE [Concomitant]
     Route: 065
  3. SIMVASTATIN [Concomitant]
     Route: 065
  4. PANTOPRAZOLE SODIUM [Concomitant]
     Route: 065
  5. ATIVAN [Concomitant]
     Route: 065
  6. RIVASA [Concomitant]
     Route: 065
  7. REMICADE [Suspect]
     Indication: PSORIASIS
     Dosage: DOSE STRENGTH 100MG/VIAL
     Route: 042
     Dates: start: 20110830, end: 20110830
  8. RAMIPRIL [Concomitant]
     Route: 065
  9. ALL OTHER THERAPEUTICS [Concomitant]
     Indication: ARTERIAL STENT INSERTION
     Route: 065
  10. ARTHROTEC [Concomitant]
     Route: 065
  11. METFORMIN HYDROCHLORIDE [Concomitant]
     Route: 065

REACTIONS (4)
  - CEREBROVASCULAR ACCIDENT [None]
  - MYOCARDIAL INFARCTION [None]
  - VIITH NERVE PARALYSIS [None]
  - ARRHYTHMIA [None]
